FAERS Safety Report 5204235-X (Version None)
Quarter: 2007Q1

REPORT INFORMATION
  Report Type: 
  Country: None (occurrence: None)
  Receive Date: 20070110
  Receipt Date: 20060118
  Transmission Date: 20070707
  Serious: No
  Sender: FDA-Public Use
  Company Number: US-BRISTOL-MYERS SQUIBB COMPANY-13251533

PATIENT
  Age: 5 Decade
  Sex: Male

DRUGS (1)
  1. ABILIFY [Suspect]
     Dosage: IN OCT-2005 PATIENT BEGAN TO BE WEANED OF MEDICATION. AS OF 18-JAN-2006 PATIENT DOSE WAS 2-5 MG/D.
     Route: 048

REACTIONS (1)
  - TARDIVE DYSKINESIA [None]
